FAERS Safety Report 17015305 (Version 1)
Quarter: 2019Q4

REPORT INFORMATION
  Report Type: Spontaneous
  Country: GB (occurrence: GB)
  Receive Date: 20191111
  Receipt Date: 20191111
  Transmission Date: 20200122
  Serious: Yes (Life-Threatening, Hospitalization, Disabling, Other)
  Sender: FDA-Public Use
  Company Number: GB-TEVA-2019-GB-1135807

PATIENT
  Age: 46 Year
  Sex: Male
  Weight: 98.42 kg

DRUGS (2)
  1. CIPROFLOXACIN HYDROCHLORIDE. [Suspect]
     Active Substance: CIPROFLOXACIN HYDROCHLORIDE
     Dosage: 1000 MILLIGRAM
     Route: 048
     Dates: start: 20190703, end: 20190705
  2. PREDNISOLONE. [Concomitant]
     Active Substance: PREDNISOLONE
     Dosage: DAILY
     Dates: start: 2014

REACTIONS (19)
  - Fatigue [Not Recovered/Not Resolved]
  - Psychotic disorder [Recovering/Resolving]
  - Myalgia [Not Recovered/Not Resolved]
  - Peripheral coldness [Unknown]
  - Tendon pain [Not Recovered/Not Resolved]
  - Pain in extremity [Not Recovered/Not Resolved]
  - Muscle twitching [Not Recovered/Not Resolved]
  - Tinnitus [Not Recovered/Not Resolved]
  - Neck pain [Unknown]
  - Abnormal loss of weight [Unknown]
  - Arthralgia [Not Recovered/Not Resolved]
  - Headache [Not Recovered/Not Resolved]
  - Musculoskeletal pain [Unknown]
  - Joint stiffness [Unknown]
  - Back pain [Unknown]
  - Pain in extremity [Unknown]
  - Suicidal ideation [Recovering/Resolving]
  - Groin pain [Not Recovered/Not Resolved]
  - Neuralgia [Not Recovered/Not Resolved]

NARRATIVE: CASE EVENT DATE: 20190705
